FAERS Safety Report 4324810-4 (Version None)
Quarter: 2004Q1

REPORT INFORMATION
  Report Type: 
  Country: None (occurrence: None)
  Receive Date: 20040326
  Receipt Date: 20040316
  Transmission Date: 20041129
  Serious: Yes (Hospitalization)
  Sender: FDA-Public Use
  Company Number: FR-GLAXOSMITHKLINE-B0327263A

PATIENT
  Sex: Male
  Weight: 3.3 kg

DRUGS (8)
  1. DEROXAT [Suspect]
     Indication: DEPRESSION
     Dosage: 20MG PER DAY
     Dates: start: 20031101
  2. ATARAX [Suspect]
     Indication: ANXIETY
     Dates: start: 20031101
  3. FEROGRAD [Concomitant]
  4. HEPTAMYL [Concomitant]
  5. GAVISCON [Concomitant]
  6. PRIMPERAN INJ [Concomitant]
     Indication: VOMITING
  7. UVEDOSE [Concomitant]
  8. TARDYFERON [Concomitant]

REACTIONS (10)
  - AGITATION [None]
  - DISTURBANCE IN ATTENTION [None]
  - DRUG EXPOSURE DURING PREGNANCY [None]
  - DYSKINESIA [None]
  - ELECTROENCEPHALOGRAM ABNORMAL [None]
  - HYPERTONIA [None]
  - HYPOTONIA NEONATAL [None]
  - OCULOGYRATION [None]
  - SLEEP DISORDER [None]
  - TREMOR NEONATAL [None]
